FAERS Safety Report 6438887-3 (Version None)
Quarter: 2009Q4

REPORT INFORMATION
  Report Type: 
  Country: None (occurrence: None)
  Receive Date: 20091113
  Receipt Date: 20091103
  Transmission Date: 20100525
  Serious: Yes (Other)
  Sender: FDA-Public Use
  Company Number: PHHY2009CN47650

PATIENT
  Age: 60 Year
  Sex: Male

DRUGS (1)
  1. LOTENSIN [Suspect]
     Indication: NEPHROPATHY
     Route: 048

REACTIONS (1)
  - HYPOTENSION [None]
